FAERS Safety Report 22678542 (Version 3)
Quarter: 2023Q4

REPORT INFORMATION
  Report Type: Spontaneous
  Country: US (occurrence: US)
  Receive Date: 20230706
  Receipt Date: 20231219
  Transmission Date: 20240110
  Serious: Yes (Other)
  Sender: FDA-Public Use
  Company Number: US-PFIZER INC-202300240756

PATIENT
  Age: 85 Year
  Sex: Female
  Weight: 70 kg

DRUGS (1)
  1. LOPID [Suspect]
     Active Substance: GEMFIBROZIL
     Dosage: UNK

REACTIONS (3)
  - Anaphylactic reaction [Unknown]
  - Abdominal discomfort [Unknown]
  - Gastrointestinal tract irritation [Unknown]
